FAERS Safety Report 7012746-X (Version None)
Quarter: 2010Q3

REPORT INFORMATION
  Report Type: 
  Country: None (occurrence: None)
  Receive Date: 20100924
  Receipt Date: 20100920
  Transmission Date: 20110219
  Serious: Yes (Hospitalization)
  Sender: FDA-Public Use
  Company Number: A0791402A

PATIENT
  Age: 62 Year
  Sex: Male

DRUGS (2)
  1. ROSIGLITAZONE MALEATE [Suspect]
     Dosage: 2MG PER DAY
     Route: 048
     Dates: start: 20060220, end: 20060601
  2. AVANDARYL [Suspect]
     Dosage: 1TAB PER DAY
     Dates: start: 20060601, end: 20070201

REACTIONS (2)
  - CARDIAC FAILURE CONGESTIVE [None]
  - MYOCARDIAL INFARCTION [None]
